FAERS Safety Report 19984960 (Version 2)
Quarter: 2021Q4

REPORT INFORMATION
  Report Type: Spontaneous
  Country: US (occurrence: US)
  Receive Date: 20211022
  Receipt Date: 20211102
  Transmission Date: 20220303
  Serious: Yes (Life-Threatening, Other)
  Sender: FDA-Public Use
  Company Number: US-PFIZER INC-202101408176

PATIENT
  Age: 60 Year
  Sex: Male

DRUGS (7)
  1. NALOXONE HCL [Suspect]
     Active Substance: NALOXONE HYDROCHLORIDE
     Indication: Depression
     Dosage: UNK
  2. MORPHINE SULFATE [Concomitant]
     Active Substance: MORPHINE SULFATE
     Dosage: 4.7 MG, 1X/DAY
     Route: 037
  3. KETAMINE [Concomitant]
     Active Substance: KETAMINE
     Indication: Intervertebral disc operation
     Dosage: 20 MG
     Route: 042
  4. SUFENTANIL [Concomitant]
     Active Substance: SUFENTANIL
     Indication: Intervertebral disc operation
     Dosage: 23 UG
     Route: 042
  5. BUPIVACAINE [Concomitant]
     Active Substance: BUPIVACAINE
     Indication: Neck pain
     Dosage: 3.1 MG, 1X/DAY
     Route: 037
  6. BACLOFEN [Concomitant]
     Active Substance: BACLOFEN
     Indication: Neck pain
     Dosage: 1.25 MG, 1X/DAY
     Route: 037
  7. FENTANYL [Concomitant]
     Active Substance: FENTANYL
     Indication: Intervertebral disc operation
     Dosage: 200 UG
     Route: 042

REACTIONS (4)
  - Respiratory failure [Recovering/Resolving]
  - Therapeutic product effect incomplete [Unknown]
  - Hypotension [Unknown]
  - Mental status changes [Unknown]
